FAERS Safety Report 23015674 (Version 1)
Quarter: 2023Q4

REPORT INFORMATION
  Report Type: Spontaneous
  Country: FR (occurrence: FR)
  Receive Date: 20231002
  Receipt Date: 20231002
  Transmission Date: 20240109
  Serious: Yes (Death, Hospitalization, Disabling, Other)
  Sender: FDA-Public Use
  Company Number: FR-MYLANLABS-2023M1103104

PATIENT
  Age: 34 Year
  Sex: Male

DRUGS (1)
  1. QUETIAPINE FUMARATE [Suspect]
     Active Substance: QUETIAPINE FUMARATE
     Indication: Back pain
     Dosage: 300 MILLIGRAM, QD
     Route: 065

REACTIONS (10)
  - Hepatic steatosis [Fatal]
  - White blood cell count increased [Fatal]
  - Antipsychotic drug level increased [Fatal]
  - Respiratory failure [Fatal]
  - Coma [Fatal]
  - Transaminases increased [Fatal]
  - Hyperglycaemia [Fatal]
  - Confusional state [Fatal]
  - Somnolence [Fatal]
  - Off label use [Fatal]

NARRATIVE: CASE EVENT DATE: 20160101
